FAERS Safety Report 4300039-0 (Version None)
Quarter: 2004Q1

REPORT INFORMATION
  Report Type: 
  Country: None (occurrence: None)
  Receive Date: 20040218
  Receipt Date: 20040202
  Transmission Date: 20041129
  Serious: Yes (Hospitalization)
  Sender: FDA-Public Use
  Company Number: JP_040202588

PATIENT
  Age: 5 Year
  Sex: Male

DRUGS (1)
  1. HUMATROPE (SOMTAROPIN) [Suspect]
     Indication: CHONDRODYSTROPHY
     Dosage: 1 MG/DAY
     Dates: start: 20031010

REACTIONS (1)
  - EPILEPSY [None]
